FAERS Safety Report 5819449-5 (Version None)
Quarter: 2008Q3

REPORT INFORMATION
  Report Type: 
  Country: None (occurrence: None)
  Receive Date: 20080723
  Receipt Date: 20080714
  Transmission Date: 20090109
  Serious: Yes (Hospitalization, Other)
  Sender: FDA-Public Use
  Company Number: AU-ALLERGAN-0805608US

PATIENT
  Age: 14 Year
  Sex: Male

DRUGS (2)
  1. BOTOX [Suspect]
     Indication: MUSCLE SPASTICITY
     Dosage: 150 UNITS, SINGLE
     Route: 042
     Dates: start: 20080508, end: 20080508
  2. BOTOX [Suspect]
     Indication: CEREBRAL PALSY

REACTIONS (1)
  - INCORRECT ROUTE OF DRUG ADMINISTRATION [None]
